FAERS Safety Report 10835694 (Version 1)
Quarter: 2015Q1

REPORT INFORMATION
  Report Type: Report from Study
  Country: US (occurrence: US)
  Receive Date: 20150219
  Receipt Date: 20150219
  Transmission Date: 20150721
  Serious: No
  Sender: FDA-Public Use
  Company Number: US-ABBVIE-14P-163-1203184-00

PATIENT
  Age: 25 Year
  Sex: Female

DRUGS (3)
  1. UNKNOWN MEDICATION FOR COUGH AND CONGESTION [Suspect]
     Active Substance: UNSPECIFIED INGREDIENT
     Indication: RESPIRATORY TRACT CONGESTION
  2. UNKNOWN MEDICATION FOR COUGH AND CONGESTION [Suspect]
     Active Substance: UNSPECIFIED INGREDIENT
     Indication: COUGH
     Dates: start: 20131225
  3. HUMIRA [Suspect]
     Active Substance: ADALIMUMAB
     Indication: CROHN^S DISEASE
     Dates: start: 201104

REACTIONS (5)
  - Influenza [Recovered/Resolved]
  - Nasal congestion [Not Recovered/Not Resolved]
  - Sinus congestion [Not Recovered/Not Resolved]
  - Diarrhoea [Recovered/Resolved]
  - Crohn^s disease [Not Recovered/Not Resolved]

NARRATIVE: CASE EVENT DATE: 201312
